FAERS Safety Report 12493547 (Version 1)
Quarter: 2016Q2

REPORT INFORMATION
  Report Type: Spontaneous
  Country: GB (occurrence: GB)
  Receive Date: 20160623
  Receipt Date: 20160623
  Transmission Date: 20160815
  Serious: Yes (Hospitalization)
  Sender: FDA-Public Use
  Company Number: GB-MYLANLABS-2016M1024767

PATIENT

DRUGS (12)
  1. ASPIRIN                            /00002701/ [Concomitant]
     Active Substance: ASPIRIN
  2. ATORVASTATIN [Suspect]
     Active Substance: ATORVASTATIN
     Indication: BLOOD CHOLESTEROL INCREASED
     Dosage: 80 MG, QD
     Route: 048
     Dates: start: 2002
  3. CIPROFLOXACIN. [Interacting]
     Active Substance: CIPROFLOXACIN
     Indication: OSTEOMYELITIS ACUTE
     Dosage: 500 MG, QD (MORNING)
     Route: 048
     Dates: start: 20160522
  4. BISOPROLOL [Concomitant]
     Active Substance: BISOPROLOL
  5. NOVOMIX [Concomitant]
     Active Substance: INSULIN ASPART
  6. ALFACALCIDOL [Concomitant]
     Active Substance: ALFACALCIDOL
  7. TRAMADOL. [Concomitant]
     Active Substance: TRAMADOL
  8. DARBEPOETIN ALFA [Concomitant]
     Active Substance: DARBEPOETIN ALFA
  9. ISOSORBIDE. [Concomitant]
     Active Substance: ISOSORBIDE
  10. TAZOCIN [Concomitant]
     Active Substance: PIPERACILLIN SODIUM\TAZOBACTAM SODIUM
  11. AMITRIPTYLINE [Concomitant]
     Active Substance: AMITRIPTYLINE
  12. FLUCLOXACILLIN [Concomitant]
     Active Substance: FLUCLOXACILLIN

REACTIONS (3)
  - Myopathy [Recovering/Resolving]
  - Drug interaction [Unknown]
  - Muscular weakness [Recovering/Resolving]

NARRATIVE: CASE EVENT DATE: 20160526
